FAERS Safety Report 7048398-2 (Version None)
Quarter: 2010Q4

REPORT INFORMATION
  Report Type: 
  Country: None (occurrence: None)
  Receive Date: 20101014
  Receipt Date: 20101014
  Transmission Date: 20110411
  Serious: Yes (Life-Threatening, Hospitalization)
  Sender: FDA-Public Use
  Company Number: None

PATIENT
  Age: 87 Year
  Sex: Female
  Weight: 90.9 kg

DRUGS (3)
  1. DICLOFENAC SODIUM [Suspect]
     Indication: GOUT
     Dosage: 75MG TWICE DAILY PO
     Route: 048
  2. DICLOFENAC SODIUM [Suspect]
     Indication: OSTEOARTHRITIS
     Dosage: 75MG TWICE DAILY PO
     Route: 048
  3. FUROSEMIDE [Suspect]
     Indication: OEDEMA
     Dosage: 80 MG TWICE DAILY PO
     Route: 048

REACTIONS (3)
  - ELECTROCARDIOGRAM T WAVE PEAKED [None]
  - HYPERKALAEMIA [None]
  - RENAL FAILURE ACUTE [None]
